FAERS Safety Report 24711131 (Version 1)
Quarter: 2024Q4

REPORT INFORMATION
  Report Type: Spontaneous
  Country: IT (occurrence: IT)
  Receive Date: 20241209
  Receipt Date: 20241209
  Transmission Date: 20250115
  Serious: Yes (Other)
  Sender: MYLAN
  Company Number: IT-MYLANLABS-2024M1107506

PATIENT
  Age: 57 Year
  Sex: Male

DRUGS (5)
  1. PREDNISONE [Suspect]
     Active Substance: PREDNISONE
     Indication: Myasthenia gravis crisis
     Dosage: 1 MILLIGRAM/KILOGRAM
     Route: 048
  2. MYCOPHENOLATE MOFETIL [Suspect]
     Active Substance: MYCOPHENOLATE MOFETIL
     Indication: Myasthenia gravis crisis
     Dosage: 2 GRAM, QD
     Route: 065
  3. AZATHIOPRINE [Suspect]
     Active Substance: AZATHIOPRINE
     Indication: Myasthenia gravis crisis
     Dosage: 3 MILLIGRAM/KILOGRAM
     Route: 065
  4. PYRIDOSTIGMINE [Concomitant]
     Active Substance: PYRIDOSTIGMINE
     Indication: Myasthenia gravis crisis
     Dosage: UNK
     Route: 065
  5. Immunoglobulin [Concomitant]
     Indication: Myasthenia gravis crisis
     Dosage: UNK
     Route: 042

REACTIONS (4)
  - Basal cell carcinoma [Unknown]
  - Osteoporosis [Unknown]
  - Arthralgia [Unknown]
  - Off label use [Unknown]
